FAERS Safety Report 7279944-1 (Version None)
Quarter: 2011Q1

REPORT INFORMATION
  Report Type: 
  Country: None (occurrence: None)
  Receive Date: 20110208
  Receipt Date: 20101221
  Transmission Date: 20110831
  Serious: Yes (Hospitalization)
  Sender: FDA-Public Use
  Company Number: US-BAYER-201034820NA

PATIENT
  Sex: Female
  Weight: 68.027 kg

DRUGS (7)
  1. MELATONIN [Concomitant]
     Indication: SLEEP DISORDER
     Dosage: 2 MG, QD
     Dates: start: 20080101
  2. YASMIN [Suspect]
     Indication: ACNE
     Dosage: UNK
     Dates: start: 20060908
  3. EFFEXOR [Concomitant]
     Indication: ANXIETY
     Dosage: UNK
     Dates: start: 20030701
  4. ADVAIR [Concomitant]
     Indication: ASTHMA
     Dosage: 250 UNK, UNK
     Route: 045
     Dates: start: 20030701
  5. PROMETHAZINE [Concomitant]
     Dosage: 25 MG, UNK
     Dates: start: 20080913
  6. HYDROCODONE BITARTRATE [Concomitant]
  7. YAZ [Suspect]
     Indication: ACNE
     Dosage: UNK
     Dates: start: 20080501, end: 20091201

REACTIONS (7)
  - ABDOMINAL PAIN UPPER [None]
  - CHOLECYSTITIS ACUTE [None]
  - CHOLECYSTITIS CHRONIC [None]
  - CHOLELITHIASIS [None]
  - DIARRHOEA [None]
  - ABDOMINAL PAIN [None]
  - NAUSEA [None]
